FAERS Safety Report 8774779 (Version 2)
Quarter: 2012Q4

REPORT INFORMATION
  Report Type: 
  Country: BR (occurrence: BR)
  Receive Date: 20120910
  Receipt Date: 20120917
  Transmission Date: 20130627
  Serious: Yes (Hospitalization, Other)
  Sender: FDA-Public Use
  Company Number: BR-PFIZER INC-2012218874

PATIENT
  Age: 35 Year
  Sex: Female

DRUGS (7)
  1. CELEBRA [Suspect]
     Dosage: 200 mg (one capsule), 2x/day
     Route: 048
     Dates: start: 2011
  2. PARATRAM [Concomitant]
     Dosage: one tablet, every 12 hours
     Dates: start: 201203
  3. DOMPERIX [Concomitant]
     Dosage: UNK
  4. SOMALIUM [Concomitant]
     Dosage: UNK
  5. SUMAX [Concomitant]
     Dosage: UNK
  6. DICLIN [Concomitant]
     Dosage: UNK
  7. NAPROXEN [Concomitant]
     Indication: PAIN

REACTIONS (7)
  - Back pain [Unknown]
  - Sciatica [Unknown]
  - Intervertebral disc injury [Unknown]
  - Oesophageal disorder [Unknown]
  - Gallbladder disorder [Unknown]
  - Headache [Unknown]
  - Pain [Unknown]
